FAERS Safety Report 7653583-2 (Version None)
Quarter: 2011Q3

REPORT INFORMATION
  Report Type: 
  Country: None (occurrence: None)
  Receive Date: 20110803
  Receipt Date: 20110721
  Transmission Date: 20111222
  Serious: No
  Sender: FDA-Public Use
  Company Number: US-B.I. PHARMACEUTICALS,INC./RIDGEFIELD-2011-BP-18274BP

PATIENT
  Sex: Male

DRUGS (6)
  1. PRADAXA [Suspect]
     Indication: ATRIAL FIBRILLATION
     Dosage: 300 MG
     Route: 048
     Dates: start: 20110615
  2. CARDIZEM [Concomitant]
     Indication: HYPERTENSION
  3. CRESTOR [Concomitant]
     Indication: BLOOD CHOLESTEROL INCREASED
  4. LEVOTHYROXINE SODIUM [Concomitant]
     Indication: HYPOTHYROIDISM
  5. VITAMIN B-12 [Concomitant]
     Indication: SUPPLEMENTATION THERAPY
  6. VIT D [Concomitant]
     Indication: SUPPLEMENTATION THERAPY

REACTIONS (2)
  - URINARY TRACT INFECTION [None]
  - BLOOD URINE PRESENT [None]
